FAERS Safety Report 23093881 (Version 2)
Quarter: 2023Q4

REPORT INFORMATION
  Report Type: Report from Study
  Country: DE (occurrence: DE)
  Receive Date: 20231023
  Receipt Date: 20231025
  Transmission Date: 20240110
  Serious: Yes (Hospitalization, Other)
  Sender: FDA-Public Use
  Company Number: DE-ABBVIE-5458299

PATIENT
  Age: 61 Year
  Sex: Female

DRUGS (15)
  1. CARBIDOPA\LEVODOPA [Suspect]
     Active Substance: CARBIDOPA\LEVODOPA
     Indication: Parkinson^s disease
     Dosage: CRD: 4,5 ML/H; ED: 3,7 ML; MD: 4,6 ML
     Route: 050
     Dates: start: 202301
  2. CARBIDOPA\LEVODOPA [Suspect]
     Active Substance: CARBIDOPA\LEVODOPA
     Dosage: MD: 8,0ML; CRD: 3,8ML/H; ED: 3,0ML
     Route: 050
  3. CARBIDOPA\LEVODOPA [Suspect]
     Active Substance: CARBIDOPA\LEVODOPA
     Dosage: MD: 8,0ML; CRD: 3,8ML/H; ED: 3,0ML
     Route: 050
     Dates: start: 20210518, end: 202210
  4. ROTIGOTINE [Concomitant]
     Active Substance: ROTIGOTINE
     Indication: Hypokinesia
     Dosage: 6 MG/24 H
  5. ROTIGOTINE [Concomitant]
     Active Substance: ROTIGOTINE
     Indication: Hypokinesia
     Dosage: 4 MG/ 24 H
  6. BENSERAZIDE\LEVODOPA [Concomitant]
     Active Substance: BENSERAZIDE\LEVODOPA
     Indication: Mobility decreased
     Dosage: 100/25 MG
  7. BENSERAZIDE\LEVODOPA [Concomitant]
     Active Substance: BENSERAZIDE\LEVODOPA
     Indication: Mobility decreased
     Dosage: 100/25 MG
  8. METAMIZOL [Concomitant]
     Active Substance: METAMIZOLE SODIUM
     Indication: Pain
  9. QUETIAPINE [Concomitant]
     Active Substance: QUETIAPINE
     Indication: Psychotic disorder
  10. OPICAPONE [Concomitant]
     Active Substance: OPICAPONE
     Indication: Product used for unknown indication
  11. CHOLECALCIFEROL [Concomitant]
     Active Substance: CHOLECALCIFEROL
     Indication: Product used for unknown indication
  12. LORAZEPAM [Concomitant]
     Active Substance: LORAZEPAM
     Indication: Restlessness
  13. Riopan [Concomitant]
     Indication: Abdominal pain upper
  14. SAFINAMIDE [Concomitant]
     Active Substance: SAFINAMIDE
     Indication: Product used for unknown indication
  15. CARBIDOPA AND LEVODOPA [Concomitant]
     Active Substance: CARBIDOPA\LEVODOPA
     Indication: Product used for unknown indication
     Dosage: TIME INTERVAL: 0.16666667 DAYS: 100/25 MG

REACTIONS (15)
  - Gait disturbance [Unknown]
  - Hallucination [Unknown]
  - Muscle rigidity [Unknown]
  - Tremor [Unknown]
  - Posture abnormal [Unknown]
  - Constipation [Unknown]
  - Hip arthroplasty [Unknown]
  - Fine motor delay [Unknown]
  - Reduced facial expression [Unknown]
  - Dysphonia [Unknown]
  - On and off phenomenon [Unknown]
  - Postoperative delirium [Unknown]
  - Tremor [Unknown]
  - Hypokinesia [Unknown]
  - Psychotic disorder [Unknown]

NARRATIVE: CASE EVENT DATE: 20220110
